FAERS Safety Report 6236542-6 (Version None)
Quarter: 2009Q2

REPORT INFORMATION
  Report Type: 
  Country: None (occurrence: None)
  Receive Date: 20090619
  Receipt Date: 20090610
  Transmission Date: 20091009
  Serious: Yes (Death, Life-Threatening, Hospitalization)
  Sender: FDA-Public Use
  Company Number: B0578289A

PATIENT
  Sex: Female

DRUGS (4)
  1. ARIXTRA [Suspect]
     Indication: DEEP VEIN THROMBOSIS
     Route: 058
     Dates: start: 20090509, end: 20090512
  2. ROCEPHIN [Concomitant]
     Route: 065
     Dates: start: 20090509, end: 20090512
  3. PYOSTACINE [Concomitant]
     Route: 065
     Dates: start: 20090509, end: 20090512
  4. PERINDOPRIL ERBUMINE [Concomitant]
     Dosage: 2MG PER DAY
     Route: 065

REACTIONS (11)
  - ANAEMIA [None]
  - ANURIA [None]
  - CONFUSIONAL STATE [None]
  - DUODENAL ULCER [None]
  - DYSPNOEA [None]
  - FLUID RETENTION [None]
  - GENERAL PHYSICAL HEALTH DETERIORATION [None]
  - HYPERCAPNIA [None]
  - MELAENA [None]
  - RENAL FAILURE [None]
  - THROMBOSIS [None]
